FAERS Safety Report 21791313 (Version 1)
Quarter: 2022Q4

REPORT INFORMATION
  Report Type: Spontaneous
  Country: DE (occurrence: DE)
  Receive Date: 20221228
  Receipt Date: 20221228
  Transmission Date: 20230113
  Serious: Yes (Hospitalization, Other)
  Sender: FDA-Public Use
  Company Number: DE-JNJFOC-20221139145

PATIENT
  Sex: Male
  Weight: 61 kg

DRUGS (10)
  1. DEXAMETHASONE [Suspect]
     Active Substance: DEXAMETHASONE
     Indication: Plasma cell myeloma
     Dosage: 40 MG, QW
     Route: 065
  2. DEXAMETHASONE [Suspect]
     Active Substance: DEXAMETHASONE
     Dosage: 20 MG, QW
     Route: 065
  3. DARZALEX [Suspect]
     Active Substance: DARATUMUMAB
     Indication: Plasma cell myeloma
     Dosage: UNK
     Route: 065
     Dates: start: 202102, end: 202202
  4. THALIDOMIDE [Suspect]
     Active Substance: THALIDOMIDE
     Indication: Plasma cell myeloma
     Dosage: 50 MG (0-0-1(2))
     Route: 065
  5. THALIDOMIDE [Suspect]
     Active Substance: THALIDOMIDE
     Dosage: 50 MG (0-0-1)
     Route: 065
  6. VELCADE [Suspect]
     Active Substance: BORTEZOMIB
     Indication: Plasma cell myeloma
     Dosage: UNK
     Route: 058
     Dates: start: 202102, end: 202202
  7. DENOSUMAB [Suspect]
     Active Substance: DENOSUMAB
     Indication: Plasma cell myeloma
     Dosage: UNK, Q4W
     Route: 065
  8. ROSUVASTATIN [Concomitant]
     Active Substance: ROSUVASTATIN
     Indication: Product used for unknown indication
     Dosage: UNK (0-0-1, TARGET LDL {55MG/D)
     Route: 065
  9. CANDESARTAN [Concomitant]
     Active Substance: CANDESARTAN
     Indication: Product used for unknown indication
     Dosage: 4 MG, BID (1-0-1)
     Route: 065
  10. ASPIRIN [Concomitant]
     Active Substance: ASPIRIN
     Indication: Product used for unknown indication
     Dosage: 100 MG, QD (1-0-0 LIFELONG)
     Route: 065

REACTIONS (12)
  - Myocardial infarction [Not Recovered/Not Resolved]
  - Bone pain [Unknown]
  - Visual acuity reduced [Unknown]
  - Dry skin [Unknown]
  - Hypoacusis [Unknown]
  - Paraesthesia [Unknown]
  - Tremor [Unknown]
  - Dyspnoea [Unknown]
  - Tinnitus [Unknown]
  - Pruritus [Unknown]
  - Increased appetite [Unknown]
  - Acne [Unknown]

NARRATIVE: CASE EVENT DATE: 20210101
